FAERS Safety Report 9586063 (Version 1)
Quarter: 2013Q4

REPORT INFORMATION
  Report Type: Spontaneous
  Country: AU (occurrence: AU)
  Receive Date: 20131003
  Receipt Date: 20131003
  Transmission Date: 20140711
  Serious: Yes (Hospitalization)
  Sender: FDA-Public Use
  Company Number: AU-JNJFOC-20130915894

PATIENT
  Sex: Male

DRUGS (1)
  1. RISPERDAL QUICKLETS [Suspect]
     Indication: PRODUCT USED FOR UNKNOWN INDICATION
     Route: 054

REACTIONS (4)
  - Hospitalisation [Unknown]
  - Euphoric mood [Not Recovered/Not Resolved]
  - Incorrect route of drug administration [Not Recovered/Not Resolved]
  - Drug diversion [Unknown]
